FAERS Safety Report 16932918 (Version 2)
Quarter: 2019Q4

REPORT INFORMATION
  Report Type: Spontaneous
  Country: TR (occurrence: TR)
  Receive Date: 20191018
  Receipt Date: 20191030
  Transmission Date: 20200122
  Serious: Yes (Hospitalization, Other)
  Sender: FDA-Public Use
  Company Number: NVSC2019TR002958

PATIENT
  Age: 57 Year
  Sex: Female

DRUGS (1)
  1. TEGRETOL [Suspect]
     Active Substance: CARBAMAZEPINE
     Indication: TRIGEMINAL NEURALGIA
     Dosage: 1 DF, TID
     Route: 065
     Dates: start: 1988

REACTIONS (4)
  - Vasoconstriction [Unknown]
  - Brain neoplasm [Unknown]
  - Photopsia [Unknown]
  - Balance disorder [Unknown]
